FAERS Safety Report 6547574-2 (Version None)
Quarter: 2010Q1

REPORT INFORMATION
  Report Type: 
  Country: None (occurrence: None)
  Receive Date: 20100122
  Receipt Date: 20100112
  Transmission Date: 20100710
  Serious: Yes (Other)
  Sender: FDA-Public Use
  Company Number: GB-PFIZER INC-2007065671

PATIENT
  Age: 55 Year
  Sex: Male

DRUGS (3)
  1. METHYLPREDNISOLONE AND METHYLPREDNISOLONE ACETATE AND METHYLPREDNISOLO [Suspect]
     Indication: ANGIOIMMUNOBLASTIC T-CELL LYMPHOMA STAGE III
     Dosage: 1-5 REPEATED EVERY 28 DAYS
  2. CISPLATIN [Suspect]
     Indication: ANGIOIMMUNOBLASTIC T-CELL LYMPHOMA
     Dosage: DAY 15
  3. GEMCITABINE [Suspect]
     Indication: ANGIOIMMUNOBLASTIC T-CELL LYMPHOMA STAGE III
     Dosage: 1G/M2, DAYS 1, 8, 15

REACTIONS (2)
  - ANAEMIA [None]
  - NEUTROPENIC SEPSIS [None]
